FAERS Safety Report 4912982-X (Version None)
Quarter: 2006Q1

REPORT INFORMATION
  Report Type: 
  Country: None (occurrence: None)
  Receive Date: 20060210
  Receipt Date: 20060130
  Transmission Date: 20060701
  Serious: Yes (Death, Other)
  Sender: FDA-Public Use
  Company Number: HQWYE971217AUG05

PATIENT
  Age: 71 Year
  Sex: Female
  Weight: 68.1 kg

DRUGS (3)
  1. PREMARIN [Suspect]
     Indication: HORMONE REPLACEMENT THERAPY
     Dosage: ORAL
     Route: 048
     Dates: start: 19750101, end: 20000401
  2. LORAZEPAM [Concomitant]
  3. DEPAKOTE [Concomitant]

REACTIONS (4)
  - HYPERTENSION [None]
  - OVARIAN CANCER [None]
  - PNEUMONIA [None]
  - POST PROCEDURAL COMPLICATION [None]
